FAERS Safety Report 9031677 (Version 6)
Quarter: 2013Q2

REPORT INFORMATION
  Report Type: Report from Study
  Country: US (occurrence: US)
  Receive Date: 20130124
  Receipt Date: 20130409
  Transmission Date: 20140414
  Serious: Yes (Hospitalization, Other)
  Sender: FDA-Public Use
  Company Number: US-ACTELION-A-US2013-77991

PATIENT
  Age: 46 Year
  Sex: Female

DRUGS (12)
  1. VELETRI [Suspect]
     Indication: PULMONARY ARTERIAL HYPERTENSION
     Dosage: 28 NG/KG, PER MIN
     Route: 042
     Dates: start: 20120216
  2. ADCIRCA [Suspect]
  3. NEURONTIN [Concomitant]
  4. FOLIC ACID [Concomitant]
  5. FLONASE [Concomitant]
  6. ZENPEP [Concomitant]
  7. MAGNESIUM [Concomitant]
  8. MAGNESIUM SULFATE [Concomitant]
  9. ZANTAC [Concomitant]
  10. THIAMINE [Concomitant]
  11. TRAZODONE [Concomitant]
  12. PROGRAF [Concomitant]
     Dosage: UNK

REACTIONS (24)
  - Pancytopenia [Recovering/Resolving]
  - Parvovirus B19 test positive [Unknown]
  - Dehydration [Recovering/Resolving]
  - Renal failure acute [Recovering/Resolving]
  - Cystitis [Recovered/Resolved]
  - Transfusion [Recovering/Resolving]
  - Pancreatitis chronic [Unknown]
  - Blood potassium decreased [Recovering/Resolving]
  - Blood magnesium decreased [Recovering/Resolving]
  - Blood creatinine increased [Recovering/Resolving]
  - White blood cell count decreased [Recovering/Resolving]
  - Platelet count decreased [Recovering/Resolving]
  - Anaemia [Recovering/Resolving]
  - Haemoglobin decreased [Recovering/Resolving]
  - Vomiting [Unknown]
  - Nausea [Unknown]
  - Hypotension [Unknown]
  - Faecal fat increased [Unknown]
  - Ascites [Unknown]
  - Oedema peripheral [Unknown]
  - Diarrhoea [Unknown]
  - Malabsorption [Unknown]
  - Hypoperfusion [Recovering/Resolving]
  - Prerenal failure [Recovering/Resolving]
